FAERS Safety Report 5787074-0 (Version None)
Quarter: 2008Q2

REPORT INFORMATION
  Report Type: 
  Country: None (occurrence: None)
  Receive Date: 20080625
  Receipt Date: 20080618
  Transmission Date: 20081010
  Serious: Yes (Death, Hospitalization)
  Sender: FDA-Public Use
  Company Number: TR-ABBOTT-08P-161-0458537-00

PATIENT
  Age: 76 Year
  Sex: Female

DRUGS (1)
  1. TARKA FORT [Suspect]
     Indication: HYPERTENSION
     Route: 048
     Dates: start: 20080601, end: 20080611

REACTIONS (2)
  - ASPIRATION [None]
  - BRADYCARDIA [None]
